FAERS Safety Report 7184225-0 (Version None)
Quarter: 2010Q4

REPORT INFORMATION
  Report Type: 
  Country: None (occurrence: None)
  Receive Date: 20101222
  Receipt Date: 20100519
  Transmission Date: 20110411
  Serious: No
  Sender: FDA-Public Use
  Company Number: US-AMGEN-KDL413517

PATIENT

DRUGS (1)
  1. ENBREL [Suspect]
     Indication: PSORIATIC ARTHROPATHY
     Dosage: 25 MG, 2 TIMES/WK
     Route: 058

REACTIONS (6)
  - ALLERGY TO ARTHROPOD STING [None]
  - ARTHROPOD STING [None]
  - HYPERSENSITIVITY [None]
  - LACERATION [None]
  - MYCOTIC ALLERGY [None]
  - RHINORRHOEA [None]
